FAERS Safety Report 11119861 (Version 1)
Quarter: 2015Q2

REPORT INFORMATION
  Report Type: Spontaneous
  Country: US (occurrence: US)
  Receive Date: 20150518
  Receipt Date: 20150518
  Transmission Date: 20150821
  Serious: Yes (Life-Threatening, Hospitalization, Other)
  Sender: FDA-Public Use
  Company Number: US-PFIZER INC-2015165058

PATIENT
  Age: 22 Year
  Sex: Male
  Weight: 79 kg

DRUGS (3)
  1. ZITHROMAX [Suspect]
     Active Substance: AZITHROMYCIN DIHYDRATE
     Dosage: 500 MG, UNK
     Dates: start: 20150210
  2. AZITHROMYCIN [Suspect]
     Active Substance: AZITHROMYCIN ANHYDROUS
     Indication: PNEUMONIA
  3. AZITHROMYCIN [Suspect]
     Active Substance: AZITHROMYCIN ANHYDROUS
     Indication: CHLAMYDIAL INFECTION
     Dosage: 2000 MG, SINGLE
     Route: 030
     Dates: start: 20150207, end: 20150207

REACTIONS (19)
  - Eye disorder [Unknown]
  - Loss of consciousness [Recovered/Resolved]
  - Cyanosis [Unknown]
  - Peripheral coldness [Recovered/Resolved]
  - Abnormal behaviour [Unknown]
  - Concussion [Unknown]
  - Drug hypersensitivity [Not Recovered/Not Resolved]
  - Anger [Unknown]
  - Repetitive speech [Unknown]
  - Disorganised speech [Unknown]
  - Confusional state [Unknown]
  - Mental disorder [Not Recovered/Not Resolved]
  - Pulse absent [Recovered/Resolved]
  - Restlessness [Unknown]
  - Gait disturbance [Unknown]
  - Muscle disorder [Unknown]
  - Dysstasia [Unknown]
  - Fall [Recovered/Resolved]
  - Insomnia [Unknown]

NARRATIVE: CASE EVENT DATE: 20150210
